FAERS Safety Report 10068640 (Version 1)
Quarter: 2014Q2

REPORT INFORMATION
  Report Type: Spontaneous
  Country: JP (occurrence: JP)
  Receive Date: 20140409
  Receipt Date: 20140409
  Transmission Date: 20141212
  Serious: Yes (Other)
  Sender: FDA-Public Use
  Company Number: JP-GLAXOSMITHKLINE-B0982937A

PATIENT
  Sex: Female

DRUGS (3)
  1. ZANTAC [Suspect]
     Indication: GASTROOESOPHAGEAL REFLUX DISEASE
     Dosage: 1IUAX TWICE PER DAY
     Route: 048
  2. CHINESE MEDICINE [Concomitant]
     Route: 048
  3. UNKNOWN DRUG [Concomitant]
     Indication: CONSTIPATION
     Route: 065

REACTIONS (3)
  - Interstitial lung disease [Unknown]
  - Pulmonary fibrosis [Unknown]
  - Back pain [Unknown]
